FAERS Safety Report 24912335 (Version 1)
Quarter: 2025Q1

REPORT INFORMATION
  Report Type: Report from Study
  Country: EG (occurrence: EG)
  Receive Date: 20250131
  Receipt Date: 20250131
  Transmission Date: 20250408
  Serious: Yes (Other)
  Sender: TAIHO ONCOLOGY INC
  Company Number: EG-SERVIER-S25001017

PATIENT
  Age: 48 Year
  Sex: Female
  Weight: 72 kg

DRUGS (1)
  1. LONSURF [Suspect]
     Active Substance: TIPIRACIL HYDROCHLORIDE\TRIFLURIDINE
     Indication: Colorectal cancer metastatic
     Dosage: 120 MG, QD (CYCLICAL)
     Route: 048
     Dates: start: 202412, end: 202501

REACTIONS (3)
  - Nerve compression [Unknown]
  - Hypokinesia [Unknown]
  - Pain [Unknown]

NARRATIVE: CASE EVENT DATE: 20250118
